FAERS Safety Report 9657045 (Version 1)
Quarter: 2013Q4

REPORT INFORMATION
  Report Type: Spontaneous
  Country: US (occurrence: None)
  Receive Date: 20131029
  Receipt Date: 20131029
  Transmission Date: 20140711
  Serious: No
  Sender: FDA-Public Use
  Company Number: None

PATIENT
  Age: 56 Year
  Sex: Male

DRUGS (1)
  1. LEVOFLOXACIN [Suspect]
     Route: 042
     Dates: start: 20130529, end: 20130531

REACTIONS (1)
  - Hypoglycaemia [None]
